FAERS Safety Report 10237777 (Version 1)
Quarter: 2014Q2

REPORT INFORMATION
  Report Type: Spontaneous
  Country: US (occurrence: None)
  Receive Date: 20140612
  Receipt Date: 20140612
  Transmission Date: 20141212
  Serious: No
  Sender: FDA-Public Use
  Company Number: None

PATIENT
  Age: 47 Year
  Sex: Male
  Weight: 120.7 kg

DRUGS (9)
  1. ARMODAFINIL [Suspect]
  2. COMPAZINE [Concomitant]
  3. DECADRON [Concomitant]
  4. KEPPRA [Concomitant]
  5. LISINOPRIL [Concomitant]
  6. METFORMIN [Concomitant]
  7. PERCOET [Concomitant]
  8. TEMODAR [Concomitant]
  9. ZOCOR [Concomitant]

REACTIONS (3)
  - Lethargy [None]
  - Aphasia [None]
  - Pyrexia [None]
